FAERS Safety Report 24063535 (Version 1)
Quarter: 2024Q3

REPORT INFORMATION
  Report Type: Spontaneous
  Country: GB (occurrence: GB)
  Receive Date: 20240709
  Receipt Date: 20240709
  Transmission Date: 20241017
  Serious: Yes (Other)
  Sender: MSN LABORATORIES
  Company Number: None

PATIENT

DRUGS (1)
  1. SOLIFENACIN SUCCINATE [Suspect]
     Active Substance: SOLIFENACIN SUCCINATE
     Indication: Product used for unknown indication
     Route: 065

REACTIONS (7)
  - Medication error [Unknown]
  - Circulatory collapse [Unknown]
  - Diarrhoea [Unknown]
  - Cold sweat [Unknown]
  - Dizziness [Recovered/Resolved]
  - Dry mouth [Unknown]
  - Vision blurred [Unknown]

NARRATIVE: CASE EVENT DATE: 20240623
